FAERS Safety Report 12772225 (Version 2)
Quarter: 2016Q4

REPORT INFORMATION
  Report Type: Spontaneous
  Country: US (occurrence: US)
  Receive Date: 20160922
  Receipt Date: 20161024
  Transmission Date: 20170207
  Serious: Yes (Other)
  Sender: FDA-Public Use
  Company Number: US-BAYER-2016-184102

PATIENT
  Age: 29 Year
  Sex: Female
  Weight: 107.48 kg

DRUGS (5)
  1. MIRENA [Suspect]
     Active Substance: LEVONORGESTREL
     Indication: CONTRACEPTION
     Dosage: 20 MCG/24HR, CONT
     Route: 015
     Dates: start: 20160825, end: 20160921
  2. DOXYCYCLINE HYCLATE. [Concomitant]
     Active Substance: DOXYCYCLINE HYCLATE
     Dosage: UNK
     Dates: start: 20160921
  3. CYTOTEC [Concomitant]
     Active Substance: MISOPROSTOL
     Dosage: UNK
     Dates: start: 20160921
  4. IBUPROFEN. [Concomitant]
     Active Substance: IBUPROFEN
     Dosage: UNK
     Dates: start: 20160825
  5. CEFUROXIME. [Concomitant]
     Active Substance: CEFUROXIME
     Dosage: UNK
     Dates: start: 20160825

REACTIONS (3)
  - Embedded device [None]
  - Pain [None]
  - Abdominal pain lower [None]
